FAERS Safety Report 18148573 (Version 1)
Quarter: 2020Q3

REPORT INFORMATION
  Report Type: Spontaneous
  Country: US (occurrence: US)
  Receive Date: 20200814
  Receipt Date: 20200814
  Transmission Date: 20201103
  Serious: No
  Sender: FDA-Public Use
  Company Number: US-BRISTOL-MYERS SQUIBB COMPANY-BMS-2020-065434

PATIENT
  Weight: 96.8 kg

DRUGS (2)
  1. COUMADIN [Suspect]
     Active Substance: WARFARIN SODIUM
     Indication: ATRIAL FIBRILLATION
     Dosage: TAKES 2 TABLETS ON FRIDAY AND SATURDAY AND 1.5 TABLETS ALL OTHER DAYS,ONCE DAILY
     Route: 048
  2. COUMADIN [Suspect]
     Active Substance: WARFARIN SODIUM
     Indication: HEART VALVE REPLACEMENT

REACTIONS (2)
  - International normalised ratio abnormal [Unknown]
  - Therapeutic product effect decreased [Unknown]
